FAERS Safety Report 23194395 (Version 2)
Quarter: 2023Q4

REPORT INFORMATION
  Report Type: Report from Study
  Country: US (occurrence: US)
  Receive Date: 20231117
  Receipt Date: 20231130
  Transmission Date: 20240110
  Serious: Yes (Hospitalization, Other)
  Sender: FDA-Public Use
  Company Number: US-UCBSA-2023053842

PATIENT
  Sex: Male

DRUGS (3)
  1. FINTEPLA [Suspect]
     Active Substance: FENFLURAMINE
     Indication: Lennox-Gastaut syndrome
     Dosage: 5.9 MILLILITER, 2X/DAY (BID)
     Route: 048
     Dates: start: 20230728
  2. FINTEPLA [Suspect]
     Active Substance: FENFLURAMINE
     Indication: Simple partial seizures
     Dosage: 5.9 MILLILITER, 2X/DAY (BID)
     Route: 048
     Dates: start: 2023
  3. FINTEPLA [Suspect]
     Active Substance: FENFLURAMINE
     Indication: Off label use

REACTIONS (10)
  - Brain operation [Recovered/Resolved]
  - Colostomy [Unknown]
  - Seizure [Recovered/Resolved]
  - Decreased appetite [Unknown]
  - Discomfort [Unknown]
  - Crying [Unknown]
  - Insomnia [Not Recovered/Not Resolved]
  - Restlessness [Unknown]
  - Feeling abnormal [Unknown]
  - Off label use [Unknown]

NARRATIVE: CASE EVENT DATE: 20230101
